FAERS Safety Report 4591513-0 (Version None)
Quarter: 2005Q1

REPORT INFORMATION
  Report Type: 
  Country: None (occurrence: None)
  Receive Date: 20050223
  Receipt Date: 20050223
  Transmission Date: 20050727
  Serious: Yes (Life-Threatening, Hospitalization)
  Sender: FDA-Public Use
  Company Number: None

PATIENT
  Age: 65 Year
  Sex: Female
  Weight: 68.0396 kg

DRUGS (13)
  1. PROMETHAZINE [Suspect]
     Indication: VOMITING
     Dosage: 12.5 MG  EVERY 4 H PRN    INTRAVENOU
     Route: 042
     Dates: start: 20050216, end: 20050218
  2. HALOPERIDOL [Concomitant]
  3. HYDROCODONE BITARTRATE + ACETAMINOPHEN [Concomitant]
  4. MAGNESIUM [Concomitant]
  5. FLUMAZENIL [Concomitant]
  6. FOLIC ACID [Concomitant]
  7. PROTONIX [Concomitant]
  8. SUCRALFATE [Concomitant]
  9. IBUPROFEN [Concomitant]
  10. ALUMINUM HYDROXIDE AND MAGNESIUM TRISILICATE [Concomitant]
  11. PROPRANOLOL LA [Concomitant]
  12. CALAN [Concomitant]
  13. PROMETHAZINE [Suspect]
     Dosage: 6.25 MG EVERY 4 H  PRN   IV
     Route: 042

REACTIONS (7)
  - AGITATION [None]
  - BRADYCARDIA [None]
  - CONFUSIONAL STATE [None]
  - ELECTROCARDIOGRAM T WAVE AMPLITUDE INCREASED [None]
  - HYPERKALAEMIA [None]
  - HYPOTENSION [None]
  - LETHARGY [None]
